FAERS Safety Report 5627329-3 (Version None)
Quarter: 2008Q1

REPORT INFORMATION
  Report Type: 
  Country: None (occurrence: None)
  Receive Date: 20080215
  Receipt Date: 20080206
  Transmission Date: 20080703
  Serious: Yes (Disabling, Other)
  Sender: FDA-Public Use
  Company Number: FR-JNJFOC-20080100864

PATIENT
  Age: 82 Year
  Sex: Male

DRUGS (1)
  1. TAVANIC [Suspect]
     Indication: PROSTATITIS
     Route: 048

REACTIONS (4)
  - BALANCE DISORDER [None]
  - CONSTIPATION [None]
  - NAUSEA [None]
  - TRANSAMINASES INCREASED [None]
